FAERS Safety Report 4388280-2 (Version None)
Quarter: 2004Q2

REPORT INFORMATION
  Report Type: 
  Country: None (occurrence: None)
  Receive Date: 20040625
  Receipt Date: 20040615
  Transmission Date: 20050107
  Serious: Yes (Other)
  Sender: FDA-Public Use
  Company Number: 24247

PATIENT
  Age: 53 Year
  Sex: Male

DRUGS (1)
  1. ALDARA [Suspect]
     Indication: ACTINIC KERATOSIS
     Dosage: 0.4286 SACHET (1 SACHET, 3 IN 1 WEEK(S))
     Route: 061
     Dates: start: 20040216, end: 20040331

REACTIONS (8)
  - DEPRESSION [None]
  - FATIGUE [None]
  - HEPATITIS [None]
  - INFLUENZA LIKE ILLNESS [None]
  - MYALGIA [None]
  - PANCREATITIS [None]
  - SLEEP DISORDER [None]
  - TESTIS DISCOMFORT [None]
